FAERS Safety Report 5573670-2 (Version None)
Quarter: 2007Q4

REPORT INFORMATION
  Report Type: 
  Country: None (occurrence: None)
  Receive Date: 20071226
  Receipt Date: 20071217
  Transmission Date: 20080405
  Serious: Yes (Other)
  Sender: FDA-Public Use
  Company Number: US-SANOFI-SYNTHELABO-A03200706424

PATIENT
  Sex: Male
  Weight: 81.6 kg

DRUGS (7)
  1. LEXAPRO [Concomitant]
     Indication: DEPRESSION
     Route: 048
  2. LEXAPRO [Concomitant]
     Indication: ANXIETY
     Route: 048
  3. LEXAPRO [Concomitant]
     Route: 048
  4. LEXAPRO [Concomitant]
     Route: 048
  5. LEXAPRO [Concomitant]
     Route: 048
     Dates: end: 20070213
  6. LEXAPRO [Concomitant]
     Route: 048
     Dates: end: 20070213
  7. AMBIEN [Suspect]
     Indication: SLEEP DISORDER
     Dosage: UNK
     Route: 048
     Dates: start: 20061201, end: 20070101

REACTIONS (6)
  - AGGRESSION [None]
  - AMNESIA [None]
  - DRUG DOSE OMISSION [None]
  - EYE OPERATION [None]
  - IRRITABILITY [None]
  - SOMNAMBULISM [None]
